FAERS Safety Report 11776432 (Version 4)
Quarter: 2015Q4

REPORT INFORMATION
  Report Type: Spontaneous
  Country: FR (occurrence: FR)
  Receive Date: 20151125
  Receipt Date: 20151223
  Transmission Date: 20160304
  Serious: Yes (Other)
  Sender: FDA-Public Use
  Company Number: FR-LEO PHARMA-238164

PATIENT
  Age: 28 Year
  Sex: Male
  Weight: 68 kg

DRUGS (1)
  1. PICATO [Suspect]
     Active Substance: INGENOL MEBUTATE
     Indication: ANOGENITAL WARTS
     Route: 061
     Dates: start: 20151030, end: 20151030

REACTIONS (5)
  - Application site oedema [Recovering/Resolving]
  - Application site pain [Recovering/Resolving]
  - Application site discharge [Recovering/Resolving]
  - Application site ulcer [Recovering/Resolving]
  - Product use issue [Unknown]

NARRATIVE: CASE EVENT DATE: 201510
